FAERS Safety Report 16455581 (Version 1)
Quarter: 2019Q2

REPORT INFORMATION
  Report Type: Other
  Country: US (occurrence: US)
  Receive Date: 20190619
  Receipt Date: 20190619
  Transmission Date: 20190711
  Serious: Yes (Life-Threatening)
  Sender: FDA-Public Use
  Company Number: US-STANDARD HOMEOPATHIC COMPANY-2069396

PATIENT
  Sex: Female

DRUGS (2)
  1. HYLAND^S LEG CRAMPS CAPLETS [Suspect]
     Active Substance: HOMEOPATHICS
     Indication: PAIN
     Route: 048
     Dates: start: 20190509, end: 20190609
  2. HYLAND^S LEG CRAMPS CAPLETS [Suspect]
     Active Substance: HOMEOPATHICS
     Indication: MUSCLE SPASMS
     Route: 048
     Dates: start: 20190509, end: 20190609

REACTIONS (1)
  - Blood glucose increased [Recovered/Resolved]

NARRATIVE: CASE EVENT DATE: 20190610
